FAERS Safety Report 5502868-4 (Version None)
Quarter: 2007Q4

REPORT INFORMATION
  Report Type: 
  Country: None (occurrence: None)
  Receive Date: 20071031
  Receipt Date: 20071026
  Transmission Date: 20080405
  Serious: Yes (Other)
  Sender: FDA-Public Use
  Company Number: US-AVENTIS-200717534US

PATIENT
  Sex: Female

DRUGS (1)
  1. LANTUS [Suspect]
     Dosage: DOSE: UNK
     Route: 051

REACTIONS (4)
  - BLINDNESS UNILATERAL [None]
  - DIABETIC RETINOPATHY [None]
  - MULTIPLE SCLEROSIS [None]
  - VISION BLURRED [None]
